FAERS Safety Report 7585958-4 (Version None)
Quarter: 2011Q3

REPORT INFORMATION
  Report Type: 
  Country: None (occurrence: None)
  Receive Date: 20110701
  Receipt Date: 20110623
  Transmission Date: 20111222
  Serious: Yes (Disabling)
  Sender: FDA-Public Use
  Company Number: IT-ASTELLAS-2011US003464

PATIENT

DRUGS (1)
  1. ERLOTINIB HYDROCHLORIDE [Suspect]
     Indication: NON-SMALL CELL LUNG CANCER
     Dosage: 150 MG, UID/QD
     Route: 048
     Dates: start: 20081003, end: 20100801

REACTIONS (1)
  - ULCERATIVE KERATITIS [None]
